APPROVED DRUG PRODUCT: TESLAC
Active Ingredient: TESTOLACTONE
Strength: 100MG/ML
Dosage Form/Route: INJECTABLE;INJECTION
Application: N016119 | Product #001
Applicant: BRISTOL MYERS SQUIBB
Approved: Approved Prior to Jan 1, 1982 | RLD: No | RS: No | Type: DISCN